FAERS Safety Report 8901117 (Version 1)
Quarter: 2012Q4

REPORT INFORMATION
  Report Type: 
  Country: GB (occurrence: GB)
  Receive Date: 20121109
  Receipt Date: 20121109
  Transmission Date: 20130627
  Serious: Yes (Disabling)
  Sender: FDA-Public Use
  Company Number: GB-TEVA-367420ISR

PATIENT
  Age: 33 Year
  Sex: Male

DRUGS (6)
  1. LAMOTRIGINE [Suspect]
     Dates: start: 20120606
  2. CHAMPIX [Suspect]
     Indication: SMOKING CESSATION THERAPY
     Dosage: Standard escalating course (0.5 and 1mg)
     Dates: start: 20120914, end: 20121015
  3. EPILIM [Suspect]
     Dates: start: 20120430
  4. MIDAZOLAM [Concomitant]
     Dates: start: 20120723, end: 20120724
  5. ZOPICLONE [Concomitant]
     Dates: start: 20120903, end: 20120917
  6. CODEINE PHOSPHATE [Concomitant]
     Dates: start: 20121015

REACTIONS (2)
  - Epilepsy [Recovering/Resolving]
  - Drug interaction [Unknown]
